FAERS Safety Report 7747788-X (Version None)
Quarter: 2011Q3

REPORT INFORMATION
  Report Type: 
  Country: None (occurrence: None)
  Receive Date: 20110909
  Receipt Date: 20110825
  Transmission Date: 20111222
  Serious: Yes (Death)
  Sender: FDA-Public Use
  Company Number: 2011S1000280

PATIENT
  Sex: Female

DRUGS (3)
  1. INOMAX [Suspect]
     Indication: PRODUCT USED FOR UNKNOWN INDICATION
     Dosage: 5 PPM;CON;INH, 10 PPM;CONT;INH, 5 PPM;CONT,INH
     Route: 037
     Dates: start: 20110801, end: 20110801
  2. INOMAX [Suspect]
     Indication: PRODUCT USED FOR UNKNOWN INDICATION
     Dosage: 5 PPM;CON;INH, 10 PPM;CONT;INH, 5 PPM;CONT,INH
     Route: 037
     Dates: start: 20110819, end: 20110801
  3. INOMAX [Suspect]
     Indication: PRODUCT USED FOR UNKNOWN INDICATION
     Dosage: 5 PPM;CON;INH, 10 PPM;CONT;INH, 5 PPM;CONT,INH
     Route: 037
     Dates: start: 20110819, end: 20110819

REACTIONS (1)
  - DEATH [None]
